FAERS Safety Report 4368696-0 (Version None)
Quarter: 2004Q2

REPORT INFORMATION
  Report Type: 
  Country: None (occurrence: None)
  Receive Date: 20040528
  Receipt Date: 20040518
  Transmission Date: 20050107
  Serious: Yes (Other)
  Sender: FDA-Public Use
  Company Number: AU-JNJFOC-20040401481

PATIENT
  Age: 40 Year
  Sex: Female

DRUGS (2)
  1. NIZORAL [Suspect]
     Indication: ORAL CANDIDIASIS
     Dosage: 200 MG, 1 IN 1 DAY, ORAL
     Route: 048
  2. CORTICOSTEROID (CORTICOSTEROID) [Concomitant]

REACTIONS (1)
  - NO ADVERSE DRUG EFFECT [None]
